FAERS Safety Report 5706996-X (Version None)
Quarter: 2008Q2

REPORT INFORMATION
  Report Type: 
  Country: None (occurrence: None)
  Receive Date: 20080416
  Receipt Date: 20080407
  Transmission Date: 20081010
  Serious: Yes (Hospitalization)
  Sender: FDA-Public Use
  Company Number: AR-BAYER-200812873LA

PATIENT
  Age: 16 Year
  Sex: Male

DRUGS (3)
  1. MAGNEVIST [Suspect]
     Indication: NUCLEAR MAGNETIC RESONANCE IMAGING
     Route: 042
     Dates: start: 20080311, end: 20080311
  2. ANTIBIOTICS [Concomitant]
     Indication: PARAESTHESIA
     Route: 065
  3. NSAID'S [Concomitant]
     Indication: PARAESTHESIA
     Route: 065

REACTIONS (2)
  - INJECTION SITE CELLULITIS [None]
  - INJECTION SITE EXTRAVASATION [None]
